FAERS Safety Report 15338852 (Version 1)
Quarter: 2018Q3

REPORT INFORMATION
  Report Type: Spontaneous
  Country: US (occurrence: US)
  Receive Date: 20180831
  Receipt Date: 20180831
  Transmission Date: 20181010
  Serious: Yes (Hospitalization)
  Sender: FDA-Public Use
  Company Number: US-JNJFOC-20180829585

PATIENT
  Sex: Male

DRUGS (2)
  1. INVEGA [Suspect]
     Active Substance: PALIPERIDONE
     Indication: BIPOLAR DISORDER
     Route: 048
     Dates: start: 201802
  2. INVEGA SUSTENNA [Suspect]
     Active Substance: PALIPERIDONE PALMITATE
     Indication: BIPOLAR DISORDER
     Route: 030
     Dates: start: 2015, end: 201802

REACTIONS (7)
  - Loss of personal independence in daily activities [Unknown]
  - Psychotic disorder [Unknown]
  - Off label use [Unknown]
  - Depression [Unknown]
  - Anxiety [Unknown]
  - Product use in unapproved indication [Unknown]
  - Asthenia [Unknown]

NARRATIVE: CASE EVENT DATE: 2018
